FAERS Safety Report 5772023-1 (Version None)
Quarter: 2008Q2

REPORT INFORMATION
  Report Type: 
  Country: None (occurrence: None)
  Receive Date: 20080612
  Receipt Date: 20080612
  Transmission Date: 20081010
  Serious: Yes (Life-Threatening, Hospitalization)
  Sender: FDA-Public Use
  Company Number: None

PATIENT
  Age: 78 Year
  Sex: Male
  Weight: 63.7304 kg

DRUGS (2)
  1. SILDENAFIL CITRATE [Suspect]
     Indication: IDIOPATHIC PULMONARY FIBROSIS
     Dosage: 20MG THREE TIMES/DAY PO
     Route: 048
     Dates: start: 20080404, end: 20080516
  2. PLACEBO [Suspect]

REACTIONS (9)
  - BLOOD PRESSURE DIASTOLIC DECREASED [None]
  - COLITIS ISCHAEMIC [None]
  - DIVERTICULUM [None]
  - ENTEROCOLITIS INFECTIOUS [None]
  - GASTROINTESTINAL NECROSIS [None]
  - HAEMOGLOBIN DECREASED [None]
  - HAEMORRHOIDS [None]
  - LARGE INTESTINAL ULCER [None]
  - PLATELET COUNT DECREASED [None]
